FAERS Safety Report 6408202-X (Version None)
Quarter: 2009Q4

REPORT INFORMATION
  Report Type: 
  Country: None (occurrence: None)
  Receive Date: 20091021
  Receipt Date: 20091009
  Transmission Date: 20100525
  Serious: Yes (Other)
  Sender: FDA-Public Use
  Company Number: GB-ROCHE-661792

PATIENT
  Age: 19 Year
  Sex: Male

DRUGS (2)
  1. TAMIFLU [Suspect]
     Dosage: THERAPY WITHDRAWN
     Route: 065
     Dates: start: 20090818, end: 20090822
  2. ABILIFY [Concomitant]

REACTIONS (4)
  - EMOTIONAL DISTRESS [None]
  - HALLUCINATION, VISUAL [None]
  - INSOMNIA [None]
  - PSYCHOTIC DISORDER [None]
